FAERS Safety Report 4721126-9 (Version None)
Quarter: 2005Q3

REPORT INFORMATION
  Report Type: 
  Country: None (occurrence: None)
  Receive Date: 20050719
  Receipt Date: 20040907
  Transmission Date: 20060218
  Serious: Yes (Hospitalization, Other)
  Sender: FDA-Public Use
  Company Number: 2004232618US

PATIENT
  Sex: Male

DRUGS (2)
  1. CELEBREX [Suspect]
  2. DRUG, UNSPECIFIED [Concomitant]

REACTIONS (1)
  - LOSS OF CONSCIOUSNESS [None]
